FAERS Safety Report 24539355 (Version 1)
Quarter: 2024Q4

REPORT INFORMATION
  Report Type: Spontaneous
  Country: US (occurrence: US)
  Receive Date: 20241023
  Receipt Date: 20241023
  Transmission Date: 20250115
  Serious: No
  Sender: ABBVIE
  Company Number: US-ABBVIE-5972420

PATIENT
  Sex: Female

DRUGS (2)
  1. REFRESH RELIEVA PF [Suspect]
     Active Substance: CARBOXYMETHYLCELLULOSE SODIUM\GLYCERIN
     Indication: Dry eye
     Dosage: TIME INTERVAL: 0.33333333 DAYS: ONE DROP IN EACH EYE?STRENGTH: 10ML
     Route: 047
     Dates: start: 20240820, end: 202409
  2. REFRESH RELIEVA PF [Suspect]
     Active Substance: CARBOXYMETHYLCELLULOSE SODIUM\GLYCERIN
     Indication: Dry eye
     Route: 047
     Dates: end: 2024

REACTIONS (2)
  - Rheumatoid arthritis [Not Recovered/Not Resolved]
  - Muscular weakness [Not Recovered/Not Resolved]
